FAERS Safety Report 9005325 (Version 2)
Quarter: 2013Q2

REPORT INFORMATION
  Report Type: Spontaneous
  Country: US (occurrence: US)
  Receive Date: 20130108
  Receipt Date: 20130408
  Transmission Date: 20140414
  Serious: No
  Sender: FDA-Public Use
  Company Number: US-GLAXOSMITHKLINE-A1003238A

PATIENT
  Age: 42 Year
  Sex: Male
  Weight: 71.4 kg

DRUGS (5)
  1. POTIGA [Suspect]
     Indication: EPILEPSY
     Dosage: 300MG SEE DOSAGE TEXT
     Route: 048
     Dates: start: 2012, end: 20121127
  2. VIMPAT [Concomitant]
     Indication: PARTIAL SEIZURES
     Dosage: 150MG TWICE PER DAY
     Route: 048
     Dates: start: 20110705
  3. KEPPRA [Concomitant]
     Indication: PARTIAL SEIZURES
     Dosage: 1000MG TWICE PER DAY
     Route: 048
  4. ZONEGRAN [Concomitant]
     Indication: PARTIAL SEIZURES
     Dosage: 100G AT NIGHT
     Route: 048
     Dates: start: 20120206
  5. DIAMOX [Concomitant]
     Indication: PARTIAL SEIZURES
     Dosage: 500MG TWICE PER DAY
     Route: 048

REACTIONS (1)
  - Rash maculo-papular [Recovered/Resolved]
